FAERS Safety Report 8388298-9 (Version None)
Quarter: 2012Q2

REPORT INFORMATION
  Report Type: 
  Country: None (occurrence: None)
  Receive Date: 20120525
  Receipt Date: 20120516
  Transmission Date: 20120825
  Serious: Yes (Hospitalization)
  Sender: FDA-Public Use
  Company Number: US-ABBOTT-12P-163-0935810-00

PATIENT
  Sex: Male
  Weight: 73.094 kg

DRUGS (4)
  1. NAPROXEN [Concomitant]
     Indication: PAIN
  2. HUMIRA [Suspect]
     Route: 058
     Dates: start: 20110801, end: 20111001
  3. MORPHINE [Concomitant]
     Indication: PAIN
  4. HUMIRA [Suspect]
     Indication: CROHN'S DISEASE
     Dates: start: 20070101, end: 20110801

REACTIONS (3)
  - INCOHERENT [None]
  - PNEUMONIA LEGIONELLA [None]
  - OSTEOMYELITIS FUNGAL [None]
